FAERS Safety Report 6640971-6 (Version None)
Quarter: 2010Q1

REPORT INFORMATION
  Report Type: 
  Country: None (occurrence: None)
  Receive Date: 20100318
  Receipt Date: 20100310
  Transmission Date: 20100710
  Serious: Yes (Hospitalization)
  Sender: FDA-Public Use
  Company Number: A0807898A

PATIENT
  Sex: Female

DRUGS (3)
  1. TYKERB [Suspect]
     Dosage: 1250MG PER DAY
     Route: 048
     Dates: start: 20090904, end: 20100301
  2. TAXOTERE [Suspect]
     Indication: DRUG USE FOR UNKNOWN INDICATION
     Route: 042
     Dates: start: 20100101, end: 20100301
  3. XELODA [Concomitant]

REACTIONS (7)
  - BACTERIAL INFECTION [None]
  - DIARRHOEA [None]
  - FATIGUE [None]
  - HEADACHE [None]
  - HYPOTENSION [None]
  - PAIN IN EXTREMITY [None]
  - PYREXIA [None]
